FAERS Safety Report 10264435 (Version 1)
Quarter: 2014Q2

REPORT INFORMATION
  Report Type: Spontaneous
  Country: US (occurrence: None)
  Receive Date: 20140623
  Receipt Date: 20140623
  Transmission Date: 20141212
  Serious: Yes (Other)
  Sender: FDA-Public Use
  Company Number: None

PATIENT
  Age: 59 Year
  Sex: Female
  Weight: 61.69 kg

DRUGS (3)
  1. NEXIUM [Suspect]
     Indication: DYSPHONIA
     Dosage: 90 CAPSULEONE CAPSULE ONCE DAILY ORALLY
     Route: 048
     Dates: start: 20140416, end: 20140426
  2. NEXIUM [Suspect]
     Indication: COUGH
     Dosage: 90 CAPSULEONE CAPSULE ONCE DAILY ORALLY
     Route: 048
     Dates: start: 20140416, end: 20140426
  3. NEXIUM [Suspect]
     Indication: DYSPEPSIA
     Dosage: 90 CAPSULEONE CAPSULE ONCE DAILY ORALLY
     Route: 048
     Dates: start: 20140416, end: 20140426

REACTIONS (7)
  - Myalgia [None]
  - Hypokinesia [None]
  - Pain [None]
  - Activities of daily living impaired [None]
  - Diarrhoea [None]
  - Blepharospasm [None]
  - Flatulence [None]
